FAERS Safety Report 16667289 (Version 6)
Quarter: 2020Q2

REPORT INFORMATION
  Report Type: Spontaneous
  Country: JP (occurrence: JP)
  Receive Date: 20190805
  Receipt Date: 20200518
  Transmission Date: 20200713
  Serious: Yes (Death, Hospitalization, Other)
  Sender: FDA-Public Use
  Company Number: JP-PFIZER INC-2019324514

PATIENT
  Age: 61 Year
  Sex: Female
  Weight: 60 kg

DRUGS (23)
  1. IBRANCE [Suspect]
     Active Substance: PALBOCICLIB
     Dosage: 100 MG,  2 DAYS-ON AND 1 DAY-OFF
     Route: 048
     Dates: start: 20180914
  2. IBRANCE [Suspect]
     Active Substance: PALBOCICLIB
     Dosage: 75 MG, ALTERNATE DAY
     Route: 048
     Dates: start: 20190426
  3. DENOTAS [Concomitant]
     Active Substance: CALCIUM CARBONATE\CHOLECALCIFEROL\MAGNESIUM CARBONATE
     Dosage: UNK
     Route: 048
  4. IBRANCE [Suspect]
     Active Substance: PALBOCICLIB
     Dosage: 100 MG,  2 DAYS-ON AND 1 DAY-OFF
     Route: 048
     Dates: start: 20180620
  5. FASLODEX [Concomitant]
     Active Substance: FULVESTRANT
     Dosage: UNK UNK, MONTHLY
     Route: 030
     Dates: start: 20180302, end: 201907
  6. IBRANCE [Suspect]
     Active Substance: PALBOCICLIB
     Dosage: 100 MG,  2 DAYS-ON AND 1 DAY-OFF
     Route: 048
     Dates: start: 20181102
  7. IBRANCE [Suspect]
     Active Substance: PALBOCICLIB
     Dosage: 75 MG,  2 DAYS-ON AND 1 DAY-OFF
     Route: 048
     Dates: start: 20190201
  8. IBRANCE [Suspect]
     Active Substance: PALBOCICLIB
     Dosage: 75 MG
     Route: 048
     Dates: start: 20190524, end: 20190621
  9. IBRANCE [Suspect]
     Active Substance: PALBOCICLIB
     Dosage: 100 MG, DAILY
     Route: 048
     Dates: start: 20180324, end: 20180406
  10. IBRANCE [Suspect]
     Active Substance: PALBOCICLIB
     Dosage: 75 MG,  2 DAYS-ON AND 1 DAY-OFF
     Route: 048
     Dates: start: 20190104
  11. IBRANCE [Suspect]
     Active Substance: PALBOCICLIB
     Dosage: 75 MG, DAILY
     Route: 048
     Dates: start: 20190309
  12. FASLODEX [Concomitant]
     Active Substance: FULVESTRANT
     Dosage: UNK UNK, MONTHLY
     Route: 030
     Dates: start: 20171212
  13. MAGMITT [Concomitant]
     Active Substance: MAGNESIUM OXIDE
     Dosage: UNK
     Route: 048
  14. IBRANCE [Suspect]
     Active Substance: PALBOCICLIB
     Dosage: 100 MG, DAILY
     Route: 048
     Dates: start: 20180525
  15. IBRANCE [Suspect]
     Active Substance: PALBOCICLIB
     Dosage: 100 MG,  2 DAYS-ON AND 1 DAY-OFF
     Route: 048
     Dates: start: 20180817
  16. IBRANCE [Suspect]
     Active Substance: PALBOCICLIB
     Dosage: 100 MG, 2 DAYS-ON AND 1 DAY-OFF
     Route: 048
     Dates: start: 20180622
  17. IBRANCE [Suspect]
     Active Substance: PALBOCICLIB
     Dosage: 100 MG,  2 DAYS-ON AND 1 DAY-OFF
     Route: 048
     Dates: start: 20181109
  18. IBRANCE [Suspect]
     Active Substance: PALBOCICLIB
     Dosage: 100 MG, DAILY
     Route: 048
     Dates: start: 20180608
  19. IBRANCE [Suspect]
     Active Substance: PALBOCICLIB
     Dosage: 100 MG,  2 DAYS-ON AND 1 DAY-OFF
     Route: 048
     Dates: start: 20180803
  20. IBRANCE [Suspect]
     Active Substance: PALBOCICLIB
     Dosage: 75 MG,  2 DAYS-ON AND 1 DAY-OFF
     Route: 048
     Dates: start: 20190301
  21. IBRANCE [Suspect]
     Active Substance: PALBOCICLIB
     Indication: BREAST CANCER METASTATIC
     Dosage: 125 MG, DAILY
     Route: 048
     Dates: start: 20180302, end: 20180316
  22. IBRANCE [Suspect]
     Active Substance: PALBOCICLIB
     Dosage: 100 MG, DAILY
     Route: 048
     Dates: start: 20180420
  23. RANMARK [Concomitant]
     Active Substance: DENOSUMAB
     Dosage: UNK, MONTHLY

REACTIONS (3)
  - Myelodysplastic syndrome [Fatal]
  - Seizure [Unknown]
  - Second primary malignancy [Fatal]

NARRATIVE: CASE EVENT DATE: 20180514
